FAERS Safety Report 9412366 (Version 1)
Quarter: 2013Q3

REPORT INFORMATION
  Report Type: Spontaneous
  Country: US (occurrence: US)
  Receive Date: 20130722
  Receipt Date: 20130722
  Transmission Date: 20140515
  Serious: No
  Sender: FDA-Public Use
  Company Number: US-BAUSCH-BL-2013-000641

PATIENT
  Age: 75 Year
  Sex: Male
  Weight: 86 kg

DRUGS (5)
  1. ISTALOL [Suspect]
     Indication: GLAUCOMA
     Dosage: 1 DROP; ONCE DAILY; OPHTHALMIC
     Route: 047
     Dates: start: 201207, end: 201207
  2. TRAVATAN [Concomitant]
     Indication: GLAUCOMA
     Route: 047
  3. DIOVAN HCT [Concomitant]
     Indication: HYPERTENSION
     Dosage: 160 VALSARTAN / 12.5 HCTZ MG DOSE UNIT:
     Route: 048
  4. CARBIDOPA LEVODOPA [Concomitant]
     Indication: PARKINSON^S DISEASE
     Route: 048
  5. JANUVIA [Concomitant]
     Indication: DIABETES MELLITUS
     Route: 048

REACTIONS (1)
  - Eye irritation [Unknown]
